FAERS Safety Report 19255086 (Version 2)
Quarter: 2021Q2

REPORT INFORMATION
  Report Type: Spontaneous
  Country: US (occurrence: US)
  Receive Date: 20210513
  Receipt Date: 20210608
  Transmission Date: 20210717
  Serious: Yes (Hospitalization)
  Sender: FDA-Public Use
  Company Number: US-PFIZER INC-2021494253

PATIENT
  Age: 65 Year
  Sex: Male
  Weight: 86.17 kg

DRUGS (1)
  1. LIDOCAINE HCL [Suspect]
     Active Substance: LIDOCAINE HYDROCHLORIDE
     Indication: TENDONITIS
     Dosage: 2 ML,1% LIDOCAINE
     Dates: start: 20210408

REACTIONS (2)
  - Off label use [Unknown]
  - Pain [Recovered/Resolved]

NARRATIVE: CASE EVENT DATE: 20210408
